FAERS Safety Report 12186971 (Version 1)
Quarter: 2016Q1

REPORT INFORMATION
  Report Type: Spontaneous
  Country: US (occurrence: None)
  Receive Date: 20160316
  Receipt Date: 20160316
  Transmission Date: 20160526
  Serious: Yes (Hospitalization)
  Sender: FDA-Public Use
  Company Number: None

PATIENT
  Age: 36 Year
  Weight: 156.49 kg

DRUGS (8)
  1. LITHIUM. [Concomitant]
     Active Substance: LITHIUM
  2. DEPAKOTE [Concomitant]
     Active Substance: DIVALPROEX SODIUM
  3. FOCUSATE SODIUM [Concomitant]
  4. HALDOL DOCANOATE [Concomitant]
  5. LABETALOL [Concomitant]
     Active Substance: LABETALOL\LABETALOL HYDROCHLORIDE
  6. DILATIAZEM [Concomitant]
  7. SENNA [Concomitant]
     Active Substance: SENNA LEAF\SENNOSIDES\SENNOSIDES A AND B
  8. CLOZAPINE 300-250 MG PSYCHIATRIC DRUG [Suspect]
     Active Substance: CLOZAPINE
     Indication: SCHIZOPHRENIA
     Dosage: CLOPAZINE, TWICE DAILY, TAKEN BY MOUTH
     Route: 048
     Dates: start: 20150327, end: 20160315

REACTIONS (7)
  - Constipation [None]
  - Therapy cessation [None]
  - Sepsis [None]
  - Pleural effusion [None]
  - Drooling [None]
  - Pneumonia [None]
  - Neuroleptic malignant syndrome [None]

NARRATIVE: CASE EVENT DATE: 20160301
